FAERS Safety Report 6451063-3 (Version None)
Quarter: 2009Q4

REPORT INFORMATION
  Report Type: 
  Country: None (occurrence: None)
  Receive Date: 20091123
  Receipt Date: 20091029
  Transmission Date: 20100525
  Serious: Yes (Hospitalization)
  Sender: FDA-Public Use
  Company Number: US-AMGEN-QUU371824

PATIENT
  Sex: Female

DRUGS (4)
  1. ENBREL [Suspect]
     Indication: RHEUMATOID ARTHRITIS
  2. METHOTREXATE [Concomitant]
  3. LOPRESSOR [Concomitant]
  4. PREDNISONE [Concomitant]

REACTIONS (3)
  - ARTHRALGIA [None]
  - GASTROINTESTINAL INFECTION [None]
  - RHEUMATOID ARTHRITIS [None]
